FAERS Safety Report 24784725 (Version 4)
Quarter: 2025Q1

REPORT INFORMATION
  Report Type: Spontaneous
  Country: US (occurrence: US)
  Receive Date: 20241228
  Receipt Date: 20250119
  Transmission Date: 20250408
  Serious: Yes (Other)
  Sender: ROCHE
  Company Number: US-ROCHE-10000166552

PATIENT
  Sex: Female
  Weight: 90.26 kg

DRUGS (2)
  1. XOLAIR [Suspect]
     Active Substance: OMALIZUMAB
     Indication: Asthma
     Dosage: EVERY 4 WEEK
     Route: 058
     Dates: start: 20230307
  2. XOLAIR [Suspect]
     Active Substance: OMALIZUMAB

REACTIONS (1)
  - Anaphylactic reaction [Unknown]
